FAERS Safety Report 9341732 (Version 1)
Quarter: 2013Q2

REPORT INFORMATION
  Report Type: Report from Study
  Country: SA (occurrence: SA)
  Receive Date: 20130611
  Receipt Date: 20130611
  Transmission Date: 20140414
  Serious: Yes (Other)
  Sender: FDA-Public Use
  Company Number: SA-ROCHE-1235296

PATIENT
  Sex: 0

DRUGS (2)
  1. PEG-INTERFERON ALFA 2A [Suspect]
     Indication: CHRONIC HEPATITIS C
     Dosage: DOSE: 135-180 UG / WEEK
     Route: 065
  2. RIBAVIRIN [Suspect]
     Indication: CHRONIC HEPATITIS C
     Dosage: DOSE: 200-1200 MG/DAY
     Route: 065

REACTIONS (1)
  - Ascites [Unknown]
